FAERS Safety Report 8850641 (Version 2)
Quarter: 2013Q1

REPORT INFORMATION
  Report Type: Spontaneous
  Country: JP (occurrence: JP)
  Receive Date: 20121019
  Receipt Date: 20130329
  Transmission Date: 20140127
  Serious: Yes (Other)
  Sender: FDA-Public Use
  Company Number: JP-009507513-1210JPN008497

PATIENT
  Age: 76 Year
  Sex: Female

DRUGS (6)
  1. GLACTIV [Suspect]
     Indication: TYPE 2 DIABETES MELLITUS
     Dosage: 50 MG, ONCE A DAY [IN THE MORNING]
     Route: 048
     Dates: start: 20120330, end: 20121010
  2. AMARYL [Concomitant]
     Dosage: UNK
     Dates: start: 20120330, end: 20121009
  3. BLOPRESS [Concomitant]
     Dosage: UNK
     Dates: start: 20120330, end: 20121009
  4. UNISIA [Concomitant]
     Dosage: UNK
     Dates: start: 20120330, end: 20121009
  5. LASIX (FUROSEMIDE) [Concomitant]
  6. BUP-4 [Concomitant]

REACTIONS (1)
  - Rhabdomyolysis [Recovering/Resolving]
